FAERS Safety Report 24405633 (Version 1)
Quarter: 2024Q4

REPORT INFORMATION
  Report Type: Spontaneous
  Country: SE (occurrence: SE)
  Receive Date: 20241007
  Receipt Date: 20241007
  Transmission Date: 20250115
  Serious: Yes (Hospitalization)
  Sender: BAYER
  Company Number: None

PATIENT
  Age: 77 Year
  Sex: Female

DRUGS (4)
  1. CIPROFLOXACIN [Suspect]
     Active Substance: CIPROFLOXACIN
  2. ELIQUIS [Concomitant]
     Active Substance: APIXABAN
  3. QUETIAPINE [Concomitant]
     Active Substance: QUETIAPINE
  4. GABAPENTIN [Concomitant]
     Active Substance: GABAPENTIN

REACTIONS (4)
  - Multiple drug therapy [Recovering/Resolving]
  - Acute kidney injury [Recovering/Resolving]
  - Rash [Recovering/Resolving]
  - Unadjusted dose administered [Recovering/Resolving]

NARRATIVE: CASE EVENT DATE: 20240801
